FAERS Safety Report 7435040-1 (Version None)
Quarter: 2011Q2

REPORT INFORMATION
  Report Type: 
  Country: None (occurrence: None)
  Receive Date: 20110425
  Receipt Date: 20110412
  Transmission Date: 20111010
  Serious: Yes (Other)
  Sender: FDA-Public Use
  Company Number: PHFR2011GB02012

PATIENT
  Sex: Male

DRUGS (4)
  1. CLOZARIL [Suspect]
     Indication: SCHIZOPHRENIA
     Dosage: 700 MG
     Route: 048
     Dates: start: 19990712
  2. AMISULPRIDE [Concomitant]
     Indication: PSYCHOTIC DISORDER
     Dosage: UNK DF, UNK
  3. CLOZARIL [Suspect]
     Dosage: 600 MG, UNK
     Route: 048
  4. CLOZARIL [Suspect]
     Dosage: 500 MG, UNK
     Route: 048

REACTIONS (3)
  - DIABETES MELLITUS [None]
  - HYPOGLYCAEMIA [None]
  - DRUG LEVEL ABOVE THERAPEUTIC [None]
